FAERS Safety Report 18409774 (Version 1)
Quarter: 2020Q4

REPORT INFORMATION
  Report Type: Spontaneous
  Country: CH (occurrence: CH)
  Receive Date: 20201021
  Receipt Date: 20201021
  Transmission Date: 20210114
  Serious: Yes (Other)
  Sender: FDA-Public Use
  Company Number: CH-009507513-2010CHE006784

PATIENT
  Sex: Male

DRUGS (7)
  1. ALIMTA [Suspect]
     Active Substance: PEMETREXED DISODIUM
     Dosage: UNK
     Dates: start: 201905
  2. PEMETREXED DISODIUM [Suspect]
     Active Substance: PEMETREXED DISODIUM
     Dosage: UNK
     Dates: start: 201907, end: 202007
  3. PACLITAXEL. [Suspect]
     Active Substance: PACLITAXEL
     Dosage: WEEKLY
     Dates: start: 20200901
  4. ELIQUIS [Suspect]
     Active Substance: APIXABAN
     Dosage: 2 X 5 MILLIGRAM/D
     Dates: start: 20200324
  5. CARBOPLATIN. [Suspect]
     Active Substance: CARBOPLATIN
     Dosage: UNK
     Dates: start: 201905
  6. PEMBROLIZUMAB. [Suspect]
     Active Substance: PEMBROLIZUMAB
     Dosage: UNKNOWN
     Dates: start: 201905
  7. XGEVA [Suspect]
     Active Substance: DENOSUMAB
     Dosage: UNK
     Dates: start: 201906, end: 202005

REACTIONS (20)
  - Osteonecrosis of jaw [Unknown]
  - Chronic kidney disease [Unknown]
  - Left ventricular failure [Unknown]
  - Malignant neoplasm progression [Unknown]
  - Renal failure [Unknown]
  - Vocal cord paresis [Unknown]
  - Rash [Unknown]
  - Aortic thrombosis [Unknown]
  - Chest pain [Unknown]
  - Aortic aneurysm [Unknown]
  - Hypothyroidism [Unknown]
  - Extrasystoles [Unknown]
  - Immune-mediated hepatitis [Unknown]
  - Autoimmune thyroiditis [Unknown]
  - Rhinitis [Unknown]
  - Mucosal inflammation [Unknown]
  - Aortic aneurysm [Unknown]
  - Coronary artery disease [Unknown]
  - Abscess [Unknown]
  - Drug eruption [Unknown]

NARRATIVE: CASE EVENT DATE: 20190521
